FAERS Safety Report 10236429 (Version 4)
Quarter: 2014Q3

REPORT INFORMATION
  Report Type: Report from Study
  Country: RS (occurrence: RS)
  Receive Date: 20140613
  Receipt Date: 20140806
  Transmission Date: 20150326
  Serious: Yes (Death, Other)
  Sender: FDA-Public Use
  Company Number: RS-ASTELLAS-2014US006699

PATIENT
  Age: 56 Year
  Sex: Male

DRUGS (2)
  1. ERLOTINIB [Suspect]
     Active Substance: ERLOTINIB
     Indication: LUNG ADENOCARCINOMA
     Route: 065
     Dates: start: 20130721, end: 20131118
  2. ERLOTINIB [Suspect]
     Active Substance: ERLOTINIB
     Route: 065
     Dates: start: 20131118, end: 20140421

REACTIONS (4)
  - Hepatotoxicity [Recovered/Resolved]
  - Paronychia [Not Recovered/Not Resolved]
  - Sudden death [Fatal]
  - Rash [Not Recovered/Not Resolved]

NARRATIVE: CASE EVENT DATE: 20130725
